FAERS Safety Report 9420325 (Version 1)
Quarter: 2013Q3

REPORT INFORMATION
  Report Type: Spontaneous
  Country: US (occurrence: US)
  Receive Date: 20130725
  Receipt Date: 20130725
  Transmission Date: 20140515
  Serious: No
  Sender: FDA-Public Use
  Company Number: US-ABBOTT-13P-163-1033202-00

PATIENT
  Age: 53 Year
  Sex: Female
  Weight: 63.56 kg

DRUGS (3)
  1. SYNTHROID [Suspect]
     Indication: HORMONE REPLACEMENT THERAPY
     Dosage: 4 DAYS A WEEK
     Dates: start: 2006
  2. SYNTHROID [Suspect]
     Dosage: THREE DAYS A WEEK
  3. ALLEGRA [Concomitant]
     Indication: HYPERSENSITIVITY

REACTIONS (2)
  - Cold sweat [Recovered/Resolved]
  - Chills [Recovered/Resolved]
